FAERS Safety Report 8884363 (Version 1)
Quarter: 2012Q4

REPORT INFORMATION
  Report Type: 
  Country: US (occurrence: US)
  Receive Date: 20121102
  Receipt Date: 20121102
  Transmission Date: 20130627
  Serious: No
  Sender: FDA-Public Use
  Company Number: US-ASTRAZENECA-2012SE22084

PATIENT
  Sex: Female

DRUGS (2)
  1. CRESTOR [Suspect]
     Indication: BLOOD CHOLESTEROL INCREASED
     Route: 048
  2. CRESTOR [Suspect]
     Indication: BLOOD CHOLESTEROL INCREASED
     Dosage: CUT THE TABLET IN HALF AND TAKE EVERY OTHER DAY
     Route: 048

REACTIONS (7)
  - Somnolence [Unknown]
  - Adverse drug reaction [Unknown]
  - Pain [Unknown]
  - Depression [Unknown]
  - Muscle spasms [Unknown]
  - Off label use [Unknown]
  - Intentional drug misuse [Unknown]
